FAERS Safety Report 23628729 (Version 2)
Quarter: 2024Q1

REPORT INFORMATION
  Report Type: Spontaneous
  Country: PR (occurrence: PR)
  Receive Date: 20240313
  Receipt Date: 20240320
  Transmission Date: 20240410
  Serious: No
  Sender: FDA-Public Use
  Company Number: PR-ABBVIE-5678113

PATIENT

DRUGS (1)
  1. VRAYLAR [Suspect]
     Active Substance: CARIPRAZINE
     Indication: Schizoaffective disorder
     Dosage: FORM STRENGTH 1.5 MG
     Route: 048

REACTIONS (1)
  - Off label use [Unknown]
